FAERS Safety Report 4618392-7 (Version None)
Quarter: 2005Q1

REPORT INFORMATION
  Report Type: 
  Country: None (occurrence: None)
  Receive Date: 20050323
  Receipt Date: 20050308
  Transmission Date: 20050727
  Serious: Yes (Hospitalization, Other)
  Sender: FDA-Public Use
  Company Number: JP_040904625

PATIENT
  Age: 36 Year
  Sex: Female
  Weight: 53 kg

DRUGS (7)
  1. ONCOVIN [Suspect]
     Indication: DIFFUSE LARGE B-CELL LYMPHOMA STAGE II
     Dosage: 2 MG OTHER
     Route: 050
     Dates: start: 20030331, end: 20030414
  2. METHOTREXATE [Concomitant]
  3. ADRIAMYCIN PFS [Concomitant]
  4. CYCLOPHOSPHAMIDE [Concomitant]
  5. PREDNISOLONE [Concomitant]
  6. BLEOMYCIN [Concomitant]
  7. KYTRIL [Concomitant]

REACTIONS (6)
  - CYTOMEGALOVIRUS TEST POSITIVE [None]
  - DISEASE RECURRENCE [None]
  - HEPATITIS VIRAL [None]
  - HERPES SIMPLEX SEROLOGY POSITIVE [None]
  - IMMUNOSUPPRESSION [None]
  - VARICELLA [None]
